FAERS Safety Report 13937823 (Version 1)
Quarter: 2017Q3

REPORT INFORMATION
  Report Type: Spontaneous
  Country: GB (occurrence: GB)
  Receive Date: 20170905
  Receipt Date: 20170905
  Transmission Date: 20171127
  Serious: Yes (Disabling, Other)
  Sender: FDA-Public Use
  Company Number: GB-SA-2017SA160030

PATIENT
  Sex: Female

DRUGS (1)
  1. LEMTRADA [Suspect]
     Active Substance: ALEMTUZUMAB
     Indication: SECONDARY PROGRESSIVE MULTIPLE SCLEROSIS
     Route: 041
     Dates: start: 201609, end: 201609

REACTIONS (8)
  - Precancerous cells present [Unknown]
  - Urinary tract infection [Unknown]
  - Smear site unspecified abnormal [Unknown]
  - Off label use [Unknown]
  - Condition aggravated [Unknown]
  - Disability [Unknown]
  - Nuclear magnetic resonance imaging abnormal [Unknown]
  - Lymphocyte count abnormal [Unknown]
